FAERS Safety Report 12078394 (Version 2)
Quarter: 2016Q1

REPORT INFORMATION
  Report Type: Report from Study
  Country: NL (occurrence: NL)
  Receive Date: 20160216
  Receipt Date: 20160311
  Transmission Date: 20160526
  Serious: Yes (Life-Threatening, Other)
  Sender: FDA-Public Use
  Company Number: NL-009507513-1602NLD006392

PATIENT

DRUGS (8)
  1. DEXAMETHASONE. [Suspect]
     Active Substance: DEXAMETHASONE
     Indication: PLASMA CELL MYELOMA
     Dosage: 20 MG, ON DAYS 1, 2, 4, 5, 8, 9, 11 AND 12 IN 3 CYCLES OF 21 DAYS EACH
     Route: 048
  2. DEXAMETHASONE. [Suspect]
     Active Substance: DEXAMETHASONE
     Dosage: 20 MG, ON DAYS 1, 2, 8, 9, 15, 16, 22, 23 IN 3 CYCLES OF 35 DAYS EACH
     Route: 048
  3. CYCLOPHOSPHAMIDE. [Suspect]
     Active Substance: CYCLOPHOSPHAMIDE
     Indication: PLASMA CELL MYELOMA
     Dosage: 50 MG, QD, IN FIRST 3 CYCLES OF 21 DAYS EACH
  4. BORTEZOMIB [Suspect]
     Active Substance: BORTEZOMIB
     Dosage: 1.3 MG/M2, QOW, MAINTENANCE THERAPY
     Route: 042
  5. CYCLOPHOSPHAMIDE. [Suspect]
     Active Substance: CYCLOPHOSPHAMIDE
     Dosage: 50 MG, QD, IN 3 CYCLES OF 35 DAYS EACH
  6. BORTEZOMIB [Suspect]
     Active Substance: BORTEZOMIB
     Indication: PLASMA CELL MYELOMA
     Dosage: 1.3 MG/M2, ON DAYS 1, 4, 8 AND 11, IN 3 CYCLES OF 21 DAYS EACH
     Route: 042
  7. CYCLOPHOSPHAMIDE. [Suspect]
     Active Substance: CYCLOPHOSPHAMIDE
     Dosage: 50 MG, QD FOR 1 YEAR, MAINTENANCE THERAPY
  8. BORTEZOMIB [Suspect]
     Active Substance: BORTEZOMIB
     Dosage: 1.6 MG/M2, ON DAYS DAYS 1, 8, 15 AND 22, IN 3 CYCLES OF 35 DAYS EACH
     Route: 042

REACTIONS (21)
  - Bone marrow failure [Unknown]
  - Abdominal discomfort [Unknown]
  - Angiopathy [Unknown]
  - Pain [Unknown]
  - Anaemia [Unknown]
  - Dizziness [Unknown]
  - Thrombocytopenia [Unknown]
  - Soft tissue disorder [Unknown]
  - Bone pain [Unknown]
  - Fatigue [Unknown]
  - Muscle disorder [Unknown]
  - Metabolic disorder [Unknown]
  - Diarrhoea [Unknown]
  - Leukopenia [Unknown]
  - Constipation [Unknown]
  - Hypertension [Unknown]
  - Nausea [Unknown]
  - Pancreatic disorder [Unknown]
  - Infection [Unknown]
  - Neuropathy peripheral [Unknown]
  - Liver disorder [Unknown]
